FAERS Safety Report 6032167-6 (Version None)
Quarter: 2009Q1

REPORT INFORMATION
  Report Type: 
  Country: None (occurrence: None)
  Receive Date: 20090107
  Receipt Date: 20081222
  Transmission Date: 20090719
  Serious: Yes (Other)
  Sender: FDA-Public Use
  Company Number: WAES 0812USA04645

PATIENT
  Age: 74 Year
  Sex: Male

DRUGS (10)
  1. ZOCOR [Suspect]
     Indication: ACUTE CORONARY SYNDROME
     Dosage: PO
     Route: 048
     Dates: start: 20061107
  2. ALPRAZOLAM [Concomitant]
  3. ASPIRIN [Concomitant]
  4. CLONAZEPAM [Concomitant]
  5. CLOPIDOGREL BISULFATE [Concomitant]
  6. FLUOXETINE HCL [Concomitant]
  7. LOVASTATIN [Concomitant]
  8. METOPROLOL TARTRATE [Concomitant]
  9. OMEPRAZOLE [Concomitant]
  10. TRAZODONE HCL [Concomitant]

REACTIONS (1)
  - GASTRIC CANCER [None]
